FAERS Safety Report 24715747 (Version 1)
Quarter: 2024Q4

REPORT INFORMATION
  Report Type: Spontaneous
  Country: GB (occurrence: GB)
  Receive Date: 20241210
  Receipt Date: 20241210
  Transmission Date: 20250114
  Serious: Yes (Hospitalization)
  Sender: MACLEODS
  Company Number: GB-MLMSERVICE-20241125-PI270532-00202-1

PATIENT

DRUGS (8)
  1. LINEZOLID [Suspect]
     Active Substance: LINEZOLID
     Indication: Mycobacterium abscessus infection
     Dosage: INITIATED 3.5 YEARS BEFORE THE INDEX ADMISSION AND PAUSED SEVERAL TIMES
     Route: 048
  2. LINEZOLID [Suspect]
     Active Substance: LINEZOLID
     Dosage: INCREASED 6 MONTHS BEFORE THE INDEX ADMISSION AND PAUSED SEVERAL TIMES
     Route: 048
  3. MOXIFLOXACIN [Suspect]
     Active Substance: MOXIFLOXACIN
     Indication: Mycobacterium abscessus infection
     Route: 048
  4. CLOFAZIMINE [Concomitant]
     Active Substance: CLOFAZIMINE
     Route: 048
  5. AZITHROMYCIN [Concomitant]
     Active Substance: AZITHROMYCIN
     Route: 048
  6. AMIKACIN [Concomitant]
     Active Substance: AMIKACIN
  7. CIPROFLOXACIN [Concomitant]
     Active Substance: CIPROFLOXACIN
     Route: 048
  8. CIPROFLOXACIN [Concomitant]
     Active Substance: CIPROFLOXACIN

REACTIONS (4)
  - Lactic acidosis [Recovered/Resolved]
  - Pancytopenia [Recovering/Resolving]
  - Coagulation time abnormal [Recovered/Resolved]
  - Nausea [Unknown]
